FAERS Safety Report 7277517-8 (Version None)
Quarter: 2011Q1

REPORT INFORMATION
  Report Type: 
  Country: None (occurrence: None)
  Receive Date: 20110202
  Receipt Date: 20110202
  Transmission Date: 20110831
  Serious: Yes (Hospitalization)
  Sender: FDA-Public Use
  Company Number: None

PATIENT
  Sex: Male
  Weight: 222.2625 kg

DRUGS (1)
  1. LEVAQUIN [Suspect]
     Indication: CELLULITIS
     Dosage: 1 TABLET DAILY PO
     Route: 048

REACTIONS (4)
  - MOBILITY DECREASED [None]
  - TENDON RUPTURE [None]
  - FALL [None]
  - PAIN [None]
